FAERS Safety Report 4417536-X (Version None)
Quarter: 2004Q3

REPORT INFORMATION
  Report Type: 
  Country: None (occurrence: None)
  Receive Date: 20040804
  Receipt Date: 20040720
  Transmission Date: 20050211
  Serious: Yes (Other)
  Sender: FDA-Public Use
  Company Number: 002108

PATIENT
  Age: 57 Year
  Sex: Female

DRUGS (3)
  1. MEDROXYPROGESTERONE ACETATE [Suspect]
     Dates: start: 19980806, end: 19990527
  2. PREMARIN [Suspect]
     Dates: start: 19980806, end: 19990527
  3. MEDROXYPROGESTERONE ACETATE [Suspect]
     Dates: start: 19970822, end: 19980805

REACTIONS (1)
  - BREAST CANCER FEMALE [None]
